FAERS Safety Report 6472591-0 (Version None)
Quarter: 2009Q4

REPORT INFORMATION
  Report Type: 
  Country: None (occurrence: None)
  Receive Date: 20091203
  Receipt Date: 20091124
  Transmission Date: 20100525
  Serious: Yes (Hospitalization)
  Sender: FDA-Public Use
  Company Number: US-BAXTER-2009BH018131

PATIENT
  Age: 60 Year
  Sex: Female

DRUGS (14)
  1. DIANEAL [Suspect]
     Indication: PERITONEAL DIALYSIS
     Route: 033
     Dates: start: 20090601
  2. EXTRANEAL [Suspect]
     Indication: PERITONEAL DIALYSIS
     Route: 033
     Dates: start: 20091102, end: 20091109
  3. EXTRANEAL [Suspect]
     Route: 033
     Dates: start: 20091102, end: 20091109
  4. TRIAMCINOLONE [Concomitant]
     Indication: DRUG USE FOR UNKNOWN INDICATION
     Route: 062
  5. DOCUSATE [Concomitant]
     Indication: DRUG USE FOR UNKNOWN INDICATION
     Route: 048
  6. FERROUS GLUCONATE [Concomitant]
     Indication: DRUG USE FOR UNKNOWN INDICATION
     Route: 048
  7. LANTHANUM CARBONATE [Concomitant]
     Indication: DRUG USE FOR UNKNOWN INDICATION
     Route: 048
  8. AMMONIUM LACTATE [Concomitant]
     Indication: DRUG USE FOR UNKNOWN INDICATION
     Route: 062
  9. EPOGEN [Concomitant]
     Indication: DRUG USE FOR UNKNOWN INDICATION
     Route: 058
  10. ACETYLSALICYLIC ACID [Concomitant]
     Indication: DRUG USE FOR UNKNOWN INDICATION
     Route: 048
  11. DOXYCYCLINE [Concomitant]
     Indication: CATHETER SITE INFECTION
     Route: 048
     Dates: start: 20091101
  12. CIPRO [Concomitant]
     Indication: CATHETER SITE INFECTION
     Route: 048
     Dates: start: 20091101
  13. CLARITHROMYCIN [Concomitant]
     Indication: CATHETER SITE INFECTION
     Route: 048
     Dates: start: 20091101
  14. PREDNISONE [Concomitant]
     Indication: SKIN EXFOLIATION
     Route: 048
     Dates: start: 20091101

REACTIONS (1)
  - CHEST PAIN [None]
